FAERS Safety Report 5445957-5 (Version None)
Quarter: 2007Q3

REPORT INFORMATION
  Report Type: 
  Country: None (occurrence: None)
  Receive Date: 20070904
  Receipt Date: 20070828
  Transmission Date: 20080115
  Serious: Yes (Death, Hospitalization, Other)
  Sender: FDA-Public Use
  Company Number: 2007SP017488

PATIENT
  Age: 56 Year
  Sex: Male
  Weight: 67 kg

DRUGS (14)
  1. TEMODAL [Suspect]
     Indication: GLIOBLASTOMA MULTIFORME
     Dosage: 150 MG/M2; QD; PO, 200 MG/M2; QD; PO, 200 MG/M2; QD; PO
     Route: 048
     Dates: start: 20070219, end: 20070223
  2. TEMODAL [Suspect]
     Indication: RECURRENT CANCER
     Dosage: 150 MG/M2; QD; PO, 200 MG/M2; QD; PO, 200 MG/M2; QD; PO
     Route: 048
     Dates: start: 20070219, end: 20070223
  3. TEMODAL [Suspect]
     Indication: GLIOBLASTOMA MULTIFORME
     Dosage: 150 MG/M2; QD; PO, 200 MG/M2; QD; PO, 200 MG/M2; QD; PO
     Route: 048
     Dates: start: 20070319, end: 20070323
  4. TEMODAL [Suspect]
     Indication: RECURRENT CANCER
     Dosage: 150 MG/M2; QD; PO, 200 MG/M2; QD; PO, 200 MG/M2; QD; PO
     Route: 048
     Dates: start: 20070319, end: 20070323
  5. TEMODAL [Suspect]
     Indication: GLIOBLASTOMA MULTIFORME
     Dosage: 150 MG/M2; QD; PO, 200 MG/M2; QD; PO, 200 MG/M2; QD; PO
     Route: 048
     Dates: start: 20070419, end: 20070423
  6. TEMODAL [Suspect]
     Indication: RECURRENT CANCER
     Dosage: 150 MG/M2; QD; PO, 200 MG/M2; QD; PO, 200 MG/M2; QD; PO
     Route: 048
     Dates: start: 20070419, end: 20070423
  7. LIPITOR [Concomitant]
  8. FAMOTIDINE [Concomitant]
  9. DEPAKENE [Concomitant]
  10. RINDERON [Concomitant]
  11. ZOFRAN ZYDIS [Concomitant]
  12. DUROTEP [Concomitant]
  13. WAKOBITAL [Concomitant]
  14. CEFAMEZIN [Concomitant]

REACTIONS (13)
  - BLOOD LACTATE DEHYDROGENASE INCREASED [None]
  - CONDITION AGGRAVATED [None]
  - LEUKAEMIA [None]
  - METASTASES TO BONE [None]
  - METASTASES TO BONE MARROW [None]
  - METASTASES TO LIVER [None]
  - METASTASES TO PLEURA [None]
  - METASTASES TO SPINE [None]
  - METASTASES TO SPLEEN [None]
  - METASTATIC NEOPLASM [None]
  - PLATELET COUNT DECREASED [None]
  - RED BLOOD CELL COUNT DECREASED [None]
  - WHITE BLOOD CELL COUNT DECREASED [None]
